FAERS Safety Report 21890249 (Version 1)
Quarter: 2023Q1

REPORT INFORMATION
  Report Type: Spontaneous
  Country: US (occurrence: None)
  Receive Date: 20230119
  Receipt Date: 20230119
  Transmission Date: 20230417
  Serious: Yes (Hospitalization, Other)
  Sender: FDA-Public Use
  Company Number: None

PATIENT
  Sex: 0

DRUGS (4)
  1. ZYPREXA [Suspect]
     Active Substance: OLANZAPINE
     Indication: Bipolar I disorder
     Dosage: OTHER QUANTITY : 1 TABLET(S);?FREQUENCY : AT BEDTIME;?
     Route: 048
  2. ABILIFY [Suspect]
     Active Substance: ARIPIPRAZOLE
     Indication: Bipolar I disorder
     Dosage: OTHER QUANTITY : 1 TABLET(S);?FREQUENCY : DAILY;?
     Route: 048
  3. LITHIUM [Suspect]
     Active Substance: LITHIUM
  4. CYMBALTA [Suspect]
     Active Substance: DULOXETINE HYDROCHLORIDE

REACTIONS (9)
  - Muscle rigidity [None]
  - Movement disorder [None]
  - Diabetes insipidus [None]
  - Mania [None]
  - Musculoskeletal stiffness [None]
  - Incontinence [None]
  - Dysphagia [None]
  - Acute kidney injury [None]
  - Therapy interrupted [None]

NARRATIVE: CASE EVENT DATE: 20220628
